FAERS Safety Report 11931843 (Version 1)
Quarter: 2016Q1

REPORT INFORMATION
  Report Type: Spontaneous
  Country: US (occurrence: US)
  Receive Date: 20160120
  Receipt Date: 20160120
  Transmission Date: 20160526
  Serious: Yes (Death)
  Sender: FDA-Public Use
  Company Number: US-AMNEAL PHARMACEUTICALS-2016AMN00046

PATIENT
  Age: 77 Year
  Sex: Female
  Weight: 106.12 kg

DRUGS (4)
  1. CELECOXIB;IBUPROFEN/NAPROXEN;PLACEBO [Suspect]
     Active Substance: CELECOXIB\IBUPROFEN\NAPROXEN\PLACEBO
     Indication: OSTEOARTHRITIS
     Dosage: BLINDED, INFORMATION WITHHELD
     Dates: start: 20120820, end: 20150929
  2. NEXIUM [Concomitant]
     Active Substance: ESOMEPRAZOLE MAGNESIUM
     Dosage: UNK
     Dates: start: 20120820
  3. CELECOXIB;IBUPROFEN/NAPROXEN;PLACEBO [Suspect]
     Active Substance: CELECOXIB\IBUPROFEN\NAPROXEN\PLACEBO
     Indication: RHEUMATOID ARTHRITIS
  4. NAPROXEN. [Suspect]
     Active Substance: NAPROXEN
     Dosage: BLINDED, INFORMATION WITH HELD
     Dates: start: 20120820, end: 20150929

REACTIONS (1)
  - Acute myocardial infarction [Fatal]

NARRATIVE: CASE EVENT DATE: 20151114
